FAERS Safety Report 14113984 (Version 1)
Quarter: 2017Q4

REPORT INFORMATION
  Report Type: Spontaneous
  Country: US (occurrence: US)
  Receive Date: 20171023
  Receipt Date: 20171023
  Transmission Date: 20180321
  Serious: No
  Sender: FDA-Public Use
  Company Number: US-BRISTOL-MYERS SQUIBB COMPANY-BMS-2017-093827

PATIENT
  Sex: Female
  Weight: 68.27 kg

DRUGS (1)
  1. OPDIVO [Suspect]
     Active Substance: NIVOLUMAB
     Indication: MALIGNANT PERITONEAL NEOPLASM
     Dosage: UNK, Q2WK
     Route: 042
     Dates: start: 2017

REACTIONS (4)
  - Nausea [Unknown]
  - Product use in unapproved indication [Unknown]
  - Weight decreased [Unknown]
  - Pruritus [Recovering/Resolving]
